FAERS Safety Report 10082644 (Version 2)
Quarter: 2014Q2

REPORT INFORMATION
  Report Type: Spontaneous
  Country: CH (occurrence: CH)
  Receive Date: 20140416
  Receipt Date: 20140612
  Transmission Date: 20141212
  Serious: Yes (Hospitalization, Other)
  Sender: FDA-Public Use
  Company Number: CH-PFIZER INC-2014101577

PATIENT
  Age: 43 Year
  Sex: Female

DRUGS (12)
  1. LYRICA [Suspect]
     Indication: PAIN
     Dosage: 3 G, SINGLE (20 CAPSULES OF 150MG)
     Route: 048
     Dates: start: 20140312, end: 20140312
  2. EXFORGE HCT [Suspect]
     Indication: HYPERTENSION
     Dosage: 1 DF (10/160/12.5 MG), 1X/DAY
     Route: 048
  3. ISONIAZID [Concomitant]
     Indication: LATENT TUBERCULOSIS
     Dosage: 100 MG, 1X/DAY
     Route: 048
  4. PANTOZOL [Concomitant]
     Indication: REFLUX GASTRITIS
     Dosage: 20 MG, 1X/DAY
     Route: 048
  5. CARBIMAZOLE [Concomitant]
     Route: 048
  6. METOJECT [Concomitant]
     Indication: POLYARTHRITIS
     Dosage: 15 MG, WEEKLY
     Route: 058
     Dates: start: 201201
  7. FERRUM HAUSMANN CAPSULE ^VIFOR^ [Concomitant]
     Indication: IRON DEFICIENCY ANAEMIA
     Dosage: 100 MG, 1X/DAY
     Route: 048
  8. FERRO SANOL [Concomitant]
     Indication: IRON DEFICIENCY ANAEMIA
     Dosage: 100 MG, 1X/DAY
     Route: 048
  9. DAFALGAN [Concomitant]
     Indication: PAIN
     Dosage: 1 G, AS NEEDED
  10. BRUFEN [Concomitant]
     Indication: PAIN
     Dosage: 400 MG, AS NEEDED
     Route: 048
  11. TRAMAL [Concomitant]
     Indication: PAIN
     Dosage: 40 GTT, AS NEEDED
     Route: 048
  12. TRAMAL [Concomitant]
     Dosage: 40 GTT, SINGLE
     Route: 048
     Dates: start: 20140312, end: 20140312

REACTIONS (9)
  - Off label use [Recovered/Resolved]
  - Intentional overdose [Recovered/Resolved]
  - Suicide attempt [Recovered/Resolved]
  - Stupor [Recovered/Resolved]
  - Hypokalaemia [Recovered/Resolved]
  - Ventricular extrasystoles [Recovered/Resolved]
  - Nausea [Recovered/Resolved]
  - Depressed level of consciousness [Recovered/Resolved]
  - Post-traumatic stress disorder [Unknown]
